FAERS Safety Report 4710937-1 (Version None)
Quarter: 2005Q3

REPORT INFORMATION
  Report Type: 
  Country: None (occurrence: None)
  Receive Date: 20050706
  Receipt Date: 20050706
  Transmission Date: 20060218
  Serious: Yes (Other)
  Sender: FDA-Public Use
  Company Number: None

PATIENT
  Sex: Female

DRUGS (1)
  1. PHENYTOIN [Suspect]
     Indication: CONVULSION
     Dosage: ONE PO BID/ONE PO TID QOD
     Route: 048

REACTIONS (2)
  - CONVULSION [None]
  - DRUG LEVEL CHANGED [None]
